FAERS Safety Report 8537186-3 (Version None)
Quarter: 2012Q3

REPORT INFORMATION
  Report Type: 
  Country: None (occurrence: None)
  Receive Date: 20120725
  Receipt Date: 20120716
  Transmission Date: 20120928
  Serious: Yes (Death)
  Sender: FDA-Public Use
  Company Number: US-ACTELION-A-US2012-68029

PATIENT

DRUGS (1)
  1. TRACLEER [Suspect]
     Indication: PULMONARY ARTERIAL HYPERTENSION
     Route: 048

REACTIONS (3)
  - CARDIAC FAILURE CONGESTIVE [None]
  - DISEASE COMPLICATION [None]
  - PULMONARY HYPERTENSION [None]
